FAERS Safety Report 12531757 (Version 2)
Quarter: 2016Q3

REPORT INFORMATION
  Report Type: Report from Study
  Country: US (occurrence: US)
  Receive Date: 20160706
  Receipt Date: 20160727
  Transmission Date: 20161109
  Serious: Yes (Hospitalization)
  Sender: FDA-Public Use
  Company Number: US-PFIZER INC-2016316278

PATIENT
  Age: 59 Year
  Sex: Female
  Weight: 98 kg

DRUGS (14)
  1. TRIAMTERENE AND HYDROCHLOROTHIZIDE [Concomitant]
     Active Substance: HYDROCHLOROTHIAZIDE\TRIAMTERENE
     Indication: HYPERTENSION
     Dosage: [TRIAMTERENE 75MG]/ [HYDROCHLOROTHIAZIDE 50 MG], DAILY
     Route: 048
     Dates: start: 201403
  2. LIVALO [Concomitant]
     Active Substance: PITAVASTATIN CALCIUM
     Indication: BLOOD CHOLESTEROL ABNORMAL
     Dosage: 4 MG, DAILY
     Route: 048
     Dates: start: 201503
  3. ULORIC [Concomitant]
     Active Substance: FEBUXOSTAT
     Indication: GOUT
     Dosage: 4 MG, DAILY
     Route: 048
     Dates: start: 201503
  4. ONDANSETRON [Concomitant]
     Active Substance: ONDANSETRON
     Indication: NAUSEA
     Dosage: 8 MG, Q 8 HOURS AS NEEDED
     Route: 060
     Dates: start: 20160408
  5. CARAFATE [Concomitant]
     Active Substance: SUCRALFATE
     Indication: ABDOMINAL PAIN
     Dosage: 100 MG/ML, 10 ML, SWISH AND SWOLLOW AC AND HS
     Route: 048
     Dates: start: 20160328
  6. IMODIUM [Concomitant]
     Active Substance: LOPERAMIDE HYDROCHLORIDE
     Indication: DIARRHOEA
     Dosage: PER PRODUCT LABEL
     Route: 048
     Dates: start: 20160405
  7. LEVOTHYROXINE. [Concomitant]
     Active Substance: LEVOTHYROXINE
     Indication: HYPOTHYROIDISM
     Dosage: 50 UG, DAILY
     Route: 048
     Dates: start: 20160412, end: 20160520
  8. ESOMEPRAZOLE [Concomitant]
     Active Substance: ESOMEPRAZOLE
     Indication: GASTROOESOPHAGEAL REFLUX DISEASE
     Dosage: 40 MG, DAILY
     Route: 048
     Dates: start: 20160113, end: 20160317
  9. SUTENT [Suspect]
     Active Substance: SUNITINIB MALATE
     Indication: METASTATIC RENAL CELL CARCINOMA
     Dosage: 50 MG, CYCLIC (7 DAYS ON, 4 DAYS OFF, 7 DAYS ON, 3 DAYS OFF)
     Route: 048
     Dates: start: 20160415, end: 20160519
  10. LABETALOL HCL [Concomitant]
     Active Substance: LABETALOL HYDROCHLORIDE
     Indication: HYPERTENSION
     Dosage: 200 MG (2 TABLETS), DAILY
     Route: 048
     Dates: start: 201403
  11. FENOFIBRATE. [Concomitant]
     Active Substance: FENOFIBRATE
     Indication: SUPPLEMENTATION THERAPY
     Dosage: 160 MG, DAILY
     Route: 048
     Dates: start: 201403
  12. TYLENOL WITH CODEINE [Concomitant]
     Active Substance: ACETAMINOPHEN\CODEINE PHOSPHATE
     Indication: ABDOMINAL PAIN
     Dosage: [PARACETAMOL 300MG]/ [CODEINE PHOSPHATE 30 MG], Q6 HOURS PRN
     Route: 048
     Dates: start: 20160401
  13. ALDACTONE [Concomitant]
     Active Substance: SPIRONOLACTONE
     Indication: HYPERTENSION
     Dosage: UNK, DAILY
     Route: 048
     Dates: start: 20160223
  14. PANTOPRAZOLE [Concomitant]
     Active Substance: PANTOPRAZOLE SODIUM
     Indication: GASTROOESOPHAGEAL REFLUX DISEASE
     Dosage: 40 MG, 2X/DAY
     Route: 048
     Dates: start: 20160318

REACTIONS (1)
  - Pancreatic insufficiency [Recovered/Resolved]

NARRATIVE: CASE EVENT DATE: 20160608
